FAERS Safety Report 9133535 (Version 1)
Quarter: 2013Q1

REPORT INFORMATION
  Report Type: Report from Study
  Country: DE (occurrence: DE)
  Receive Date: 20130301
  Receipt Date: 20130301
  Transmission Date: 20140127
  Serious: Yes (Other)
  Sender: FDA-Public Use
  Company Number: DE-ABBOTT-13P-062-1054704-00

PATIENT
  Age: 34 Year
  Sex: Female

DRUGS (6)
  1. HUMIRA [Suspect]
     Indication: CROHN^S DISEASE
     Route: 058
     Dates: start: 20090804, end: 20090804
  2. HUMIRA [Suspect]
  3. HUMIRA [Suspect]
     Route: 058
     Dates: end: 20090903
  4. REMICADE [Concomitant]
     Dates: start: 20090909, end: 20090909
  5. REMICADE [Concomitant]
     Dates: start: 20090922, end: 20090922
  6. REMICADE [Concomitant]
     Dosage: SCHEDULED FOR 4 WEEK INTERVAL THEN 8 WEEK INTERVAL

REACTIONS (1)
  - Intestinal obstruction [Not Recovered/Not Resolved]
